FAERS Safety Report 5669688-1 (Version None)
Quarter: 2008Q1

REPORT INFORMATION
  Report Type: 
  Country: None (occurrence: None)
  Receive Date: 20080313
  Receipt Date: 20080313
  Transmission Date: 20080703
  Serious: Yes (Life-Threatening, Other)
  Sender: FDA-Public Use
  Company Number: None

PATIENT
  Age: 72 Year
  Sex: Male
  Weight: 74.2 kg

DRUGS (1)
  1. RITUXIMAB [Suspect]
     Indication: B-CELL LYMPHOMA STAGE I
     Dosage: 680MG ONCE IV
     Route: 042
     Dates: start: 20071224, end: 20071224

REACTIONS (1)
  - ANAPHYLACTOID REACTION [None]
